FAERS Safety Report 5383314-0 (Version None)
Quarter: 2007Q3

REPORT INFORMATION
  Report Type: 
  Country: None (occurrence: None)
  Receive Date: 20070710
  Receipt Date: 20070627
  Transmission Date: 20080115
  Serious: Yes (Hospitalization)
  Sender: FDA-Public Use
  Company Number: CA-ELI_LILLY_AND_COMPANY-CA200706006527

PATIENT
  Age: 13 Year
  Sex: Female
  Weight: 72.562 kg

DRUGS (2)
  1. STRATTERA [Suspect]
     Dosage: 60 MG, DAILY (1/D)
     Route: 048
  2. LAMOTRIGINE [Concomitant]
     Indication: MOOD ALTERED

REACTIONS (5)
  - AFFECTIVE DISORDER [None]
  - ATTENTION DEFICIT/HYPERACTIVITY DISORDER [None]
  - HEPATIC ENZYME INCREASED [None]
  - PYREXIA [None]
  - RASH [None]
